FAERS Safety Report 6931305-8 (Version None)
Quarter: 2010Q3

REPORT INFORMATION
  Report Type: 
  Country: None (occurrence: None)
  Receive Date: 20100818
  Receipt Date: 20100805
  Transmission Date: 20110219
  Serious: Yes (Hospitalization, Disabling)
  Sender: FDA-Public Use
  Company Number: US-ELI_LILLY_AND_COMPANY-US201008001962

PATIENT
  Sex: Male

DRUGS (5)
  1. HUMALOG [Suspect]
     Indication: TYPE 1 DIABETES MELLITUS
     Dosage: 6 U, EACH MORNING
     Dates: start: 20070101
  2. HUMALOG [Suspect]
     Dosage: 11 U, DAILY (1/D)
     Dates: start: 20070101
  3. HUMALOG [Suspect]
     Dosage: 13 U, EACH EVENING
     Dates: start: 20070101
  4. HUMALOG [Suspect]
     Dates: start: 20070101
  5. LANTUS [Concomitant]

REACTIONS (4)
  - BLOOD GLUCOSE INCREASED [None]
  - CEREBROVASCULAR ACCIDENT [None]
  - DRUG INEFFECTIVE [None]
  - MOBILITY DECREASED [None]
